FAERS Safety Report 12569719 (Version 1)
Quarter: 2016Q3

REPORT INFORMATION
  Report Type: Spontaneous
  Country: CA (occurrence: None)
  Receive Date: 20160718
  Receipt Date: 20160718
  Transmission Date: 20161109
  Serious: Yes (Life-Threatening, Hospitalization, Disabling)
  Sender: FDA-Public Use
  Company Number: None

PATIENT
  Age: 31 Year
  Sex: Male
  Weight: 74.84 kg

DRUGS (3)
  1. LORAZEPAM. [Concomitant]
     Active Substance: LORAZEPAM
  2. SALBUTAMOL [Concomitant]
     Active Substance: ALBUTEROL
  3. INVEGA [Suspect]
     Active Substance: PALIPERIDONE
     Indication: PSYCHOTIC DISORDER
     Route: 048
     Dates: start: 20160503, end: 20160503

REACTIONS (7)
  - Irritability [None]
  - Anxiety [None]
  - Dystonia [None]
  - Withdrawal syndrome [None]
  - Hallucination [None]
  - Overdose [None]
  - Seizure [None]

NARRATIVE: CASE EVENT DATE: 20160503
